FAERS Safety Report 18435572 (Version 1)
Quarter: 2020Q4

REPORT INFORMATION
  Report Type: Spontaneous
  Country: US (occurrence: US)
  Receive Date: 20201028
  Receipt Date: 20201028
  Transmission Date: 20210114
  Serious: No
  Sender: FDA-Public Use
  Company Number: US-BAYER-2020-230967

PATIENT
  Age: 50 Year
  Sex: Female

DRUGS (1)
  1. SKYLA [Suspect]
     Active Substance: LEVONORGESTREL
     Indication: HORMONE LEVEL ABNORMAL
     Dosage: 14 ?G PER DAY CONTINUOUSLY
     Route: 015
     Dates: start: 201804

REACTIONS (3)
  - Off label use [None]
  - Product use in unapproved indication [None]
  - Product use issue [None]

NARRATIVE: CASE EVENT DATE: 201804
